FAERS Safety Report 9238002 (Version 3)
Quarter: 2013Q3

REPORT INFORMATION
  Report Type: Spontaneous
  Country: US (occurrence: None)
  Receive Date: 20130329
  Receipt Date: 20130705
  Transmission Date: 20140515
  Serious: Yes (Hospitalization)
  Sender: FDA-Public Use
  Company Number: 2013PROUSA02668

PATIENT
  Age: 84 Year
  Sex: Male
  Weight: 61.2 kg

DRUGS (8)
  1. PROVENGE [Suspect]
     Indication: PROSTATE CANCER METASTATIC
     Dosage: 250 ML, SINGLE, INTRAVENOUS
     Route: 042
     Dates: start: 20130307, end: 20130307
  2. NILLANDRON (NILLUTAMIDE) [Concomitant]
  3. VITAMIN D3 (COLECALCIFEROL) [Concomitant]
  4. AMINO ACIDS NOS W/VITAMINS NOS (AMINO ACIDS NOS, VITAMINS NOS) [Concomitant]
  5. CANDESARTAN W/HYDROCHLOROTHIAZIDE (CANDESARTAN W/HYDROCHLOROTHIAZIDE) [Concomitant]
  6. MULTIVITAMIN (VITAMINS NOS) [Concomitant]
  7. ALFUZOSIN (ALFUZOSIN) [Concomitant]
  8. OMEGA 3 FISH OIL (FISH OIL) [Concomitant]

REACTIONS (8)
  - Renal failure acute [None]
  - Urinary retention [None]
  - Diarrhoea [None]
  - Decreased appetite [None]
  - Bradycardia [None]
  - Anaemia macrocytic [None]
  - Hyperkalaemia [None]
  - Hyponatraemia [None]
